FAERS Safety Report 8270316 (Version 3)
Quarter: 2013Q4

REPORT INFORMATION
  Report Type: Spontaneous
  Country: US (occurrence: US)
  Receive Date: 20111201
  Receipt Date: 20131115
  Transmission Date: 20140711
  Serious: Yes (Hospitalization)
  Sender: FDA-Public Use
  Company Number: US-BAYER-2011-113004

PATIENT
  Age: 21 Year
  Sex: Female
  Weight: 52.15 kg

DRUGS (17)
  1. YASMIN [Suspect]
     Dosage: UNK
     Dates: start: 2007, end: 2009
  2. ZANTAC [Concomitant]
     Dosage: UNK UNK, PRN
  3. PRENATAL VITAMINS [Concomitant]
     Dosage: DAILY
  4. CLINDAMYCIN HYDROCHLORIDE [Concomitant]
  5. DICLOFENAC [Concomitant]
  6. TYLENOL #3 [Concomitant]
     Dosage: 1 TAB PM (AS NEEDED)
     Dates: start: 20091109
  7. COLACE [Concomitant]
     Dosage: 100 MG, BID
     Dates: start: 20091110
  8. FERROUS SULFATE [Concomitant]
     Dosage: 325 MG, BID
     Dates: start: 20091110
  9. IBUPROFEN [Concomitant]
     Indication: PAIN
     Dosage: 800 MG, TID
     Dates: start: 20091110
  10. SENNA PLUS [DOCUSATE SODIUM,SENNOSIDE A+B] [Concomitant]
     Dosage: UNK
     Dates: start: 20091110
  11. DULCOLAX [BISACODYL] [Concomitant]
     Dosage: 10 MG, UNK
     Dates: start: 20091110
  12. PYRIDIUM [Concomitant]
     Dosage: 200 MG, TID
     Dates: start: 20091110
  13. BENZOCAINE-MENTHOL [Concomitant]
     Dosage: 20-0.5% 1 SPRAY PM
     Dates: start: 20091110
  14. FENTANYL CITRATE [Concomitant]
     Dosage: 200 MG, UNK
     Dates: start: 20091109
  15. OXYTOCIN [Concomitant]
     Dosage: 20 U, UNK
     Dates: start: 20091109
  16. BUPIVACAINE HYDROCHLORIDE [Concomitant]
     Dosage: 130 ML, UNK
     Dates: start: 20091109
  17. TYLENOL [PARACETAMOL] [Concomitant]
     Dosage: 650 MG, UNK
     Dates: start: 20091109

REACTIONS (3)
  - Cholecystitis acute [None]
  - Gallbladder injury [None]
  - Pain [None]
